FAERS Safety Report 4680849-0 (Version None)
Quarter: 2005Q2

REPORT INFORMATION
  Report Type: 
  Country: None (occurrence: None)
  Receive Date: 20050601
  Receipt Date: 20050601
  Transmission Date: 20051028
  Serious: Yes (Hospitalization)
  Sender: FDA-Public Use
  Company Number: None

PATIENT
  Age: 71 Year
  Sex: Male

DRUGS (5)
  1. FUDR [Suspect]
     Indication: OESOPHAGEAL CANCER METASTATIC
     Dosage: 110 MG/KG CIV
     Route: 042
     Dates: start: 20050214, end: 20050223
  2. LEUCOVORIN  500 MG /M2 [Suspect]
     Dosage: 500 MG/M2 CIV
     Route: 042
  3. OXALIPLATIN 85 MG/M2 [Suspect]
     Dosage: 8 MG/MOVER 2 HR
  4. TAXOTERE [Suspect]
     Dosage: 25 MG/M2 AFTER 30 MIN
  5. NEUPOGEN [Concomitant]

REACTIONS (3)
  - DEEP VEIN THROMBOSIS [None]
  - DEHYDRATION [None]
  - NEUTROPENIA [None]
